FAERS Safety Report 8825719 (Version 1)
Quarter: 2012Q4

REPORT INFORMATION
  Report Type: 
  Country: NL (occurrence: NL)
  Receive Date: 20121004
  Receipt Date: 20121004
  Transmission Date: 20130627
  Serious: Yes (Hospitalization)
  Sender: FDA-Public Use
  Company Number: NL-ASTRAZENECA-2001SE05692

PATIENT
  Sex: Male
  Weight: 95 kg

DRUGS (3)
  1. LOSEC [Suspect]
     Indication: ABDOMINAL PAIN
     Route: 048
  2. CIMETIDINE [Concomitant]
  3. MEBEVERINE [Concomitant]

REACTIONS (1)
  - Porphyria [Recovered/Resolved]
